FAERS Safety Report 5452102-9 (Version None)
Quarter: 2007Q3

REPORT INFORMATION
  Report Type: 
  Country: None (occurrence: None)
  Receive Date: 20070912
  Receipt Date: 20070830
  Transmission Date: 20080115
  Serious: Yes (Other)
  Sender: FDA-Public Use
  Company Number: 23733K07USA

PATIENT
  Age: 36 Year
  Sex: Female

DRUGS (1)
  1. REBIF [Suspect]
     Indication: MULTIPLE SCLEROSIS
     Dosage: 44 MCG, 3 IN 1 WEEKS, SUBCUTANEOUS
     Route: 058
     Dates: start: 20050829

REACTIONS (5)
  - CONVULSION [None]
  - DROOLING [None]
  - DYSPHEMIA [None]
  - HEPATIC ENZYME ABNORMAL [None]
  - ROAD TRAFFIC ACCIDENT [None]
